FAERS Safety Report 5489070-X (Version None)
Quarter: 2007Q4

REPORT INFORMATION
  Report Type: 
  Country: None (occurrence: None)
  Receive Date: 20071005
  Receipt Date: 20070607
  Transmission Date: 20080405
  Serious: No
  Sender: FDA-Public Use
  Company Number: PHEH2007US08526

PATIENT
  Age: 42 Year
  Sex: Male

DRUGS (5)
  1. TEKTURNA [Suspect]
     Indication: HYPERTENSION
     Dosage: 150 MG, QD, ORAL
     Route: 048
  2. VYTORIN [Suspect]
     Dosage: ORAL
  3. HYTRIN [Concomitant]
  4. LOTREL [Concomitant]
  5. TOPROL-XL [Concomitant]

REACTIONS (2)
  - BACK PAIN [None]
  - BLOOD URINE PRESENT [None]
